FAERS Safety Report 9851679 (Version 2)
Quarter: 2014Q1

REPORT INFORMATION
  Report Type: Report from Study
  Country: US (occurrence: US)
  Receive Date: 20140129
  Receipt Date: 20140129
  Transmission Date: 20141002
  Serious: Yes (Other)
  Sender: FDA-Public Use
  Company Number: US-ROCHE-1219877

PATIENT
  Age: 44 Year
  Sex: Female

DRUGS (2)
  1. VEMURAFENIB [Suspect]
     Indication: METASTATIC MALIGNANT MELANOMA
     Route: 048
  2. VEMURAFENIB [Suspect]
     Dosage: DOSE REDUCED
     Route: 048

REACTIONS (2)
  - Neutrophilic panniculitis [Recovering/Resolving]
  - Arthralgia [Recovering/Resolving]
